FAERS Safety Report 14433692 (Version 3)
Quarter: 2018Q1

REPORT INFORMATION
  Report Type: Spontaneous
  Country: US (occurrence: US)
  Receive Date: 20180124
  Receipt Date: 20180308
  Transmission Date: 20180509
  Serious: Yes (Disabling)
  Sender: FDA-Public Use
  Company Number: US-SA-2018SA016381

PATIENT
  Age: 77 Year
  Sex: Female
  Weight: 127 kg

DRUGS (8)
  1. LANTUS SOLOSTAR [Suspect]
     Active Substance: INSULIN GLARGINE
     Indication: DIABETES MELLITUS
     Dosage: START DATE : YEARS DOSE:70 UNIT(S)
     Route: 051
     Dates: start: 2012
  2. LANTUS SOLOSTAR [Suspect]
     Active Substance: INSULIN GLARGINE
     Indication: TYPE 2 DIABETES MELLITUS
     Dosage: DOSE:70 UNIT(S)
     Route: 051
  3. FUROSEMIDE. [Concomitant]
     Active Substance: FUROSEMIDE
     Route: 065
     Dates: start: 2008
  4. SOLOSTAR [Suspect]
     Active Substance: DEVICE
     Indication: TYPE 2 DIABETES MELLITUS
     Dosage: START DATE: YEARS
  5. SOLOSTAR [Suspect]
     Active Substance: DEVICE
     Indication: TYPE 2 DIABETES MELLITUS
  6. NOVOLOG [Concomitant]
     Active Substance: INSULIN ASPART
  7. LANTUS SOLOSTAR [Suspect]
     Active Substance: INSULIN GLARGINE
     Indication: TYPE 2 DIABETES MELLITUS
     Dosage: START DATE : YEARS DOSE:70 UNIT(S)
     Route: 051
     Dates: start: 2012
  8. LANTUS SOLOSTAR [Suspect]
     Active Substance: INSULIN GLARGINE
     Indication: DIABETES MELLITUS
     Dosage: DOSE:70 UNIT(S)
     Route: 051

REACTIONS (7)
  - Fall [Unknown]
  - Memory impairment [Unknown]
  - Product use issue [Unknown]
  - Concussion [Unknown]
  - Hypoacusis [Unknown]
  - Disability [Unknown]
  - Speech disorder [Unknown]

NARRATIVE: CASE EVENT DATE: 2012
